FAERS Safety Report 16256599 (Version 1)
Quarter: 2019Q2

REPORT INFORMATION
  Report Type: Spontaneous
  Country: US (occurrence: US)
  Receive Date: 20190430
  Receipt Date: 20190430
  Transmission Date: 20190711
  Serious: No
  Sender: FDA-Public Use
  Company Number: US-ABBVIE-19S-163-2699976-00

PATIENT
  Sex: Male
  Weight: 104.33 kg

DRUGS (8)
  1. CENTRUM SILVER +50 [Concomitant]
     Indication: VITAMIN SUPPLEMENTATION
     Route: 048
  2. CREON [Suspect]
     Active Substance: PANCRELIPASE AMYLASE\PANCRELIPASE LIPASE\PANCRELIPASE PROTEASE
     Indication: PRODUCT USED FOR UNKNOWN INDICATION
     Route: 048
     Dates: start: 2017
  3. VITAMIN B12 [Concomitant]
     Active Substance: CYANOCOBALAMIN
     Indication: VITAMIN SUPPLEMENTATION
     Route: 060
  4. LANTUS [Concomitant]
     Active Substance: INSULIN GLARGINE
     Route: 058
  5. OXYCONTIN [Concomitant]
     Active Substance: OXYCODONE HYDROCHLORIDE
     Indication: PAIN
  6. CETIRIZINE [Concomitant]
     Active Substance: CETIRIZINE HYDROCHLORIDE
     Indication: SEASONAL ALLERGY
     Route: 048
  7. LANTUS [Concomitant]
     Active Substance: INSULIN GLARGINE
     Indication: DIABETES MELLITUS
     Route: 058
  8. VITAMIN C [Concomitant]
     Active Substance: ASCORBIC ACID
     Indication: VITAMIN SUPPLEMENTATION
     Route: 048

REACTIONS (15)
  - Taste disorder [Recovering/Resolving]
  - Gastrointestinal pain [Recovering/Resolving]
  - Insomnia [Recovering/Resolving]
  - Hypophagia [Recovering/Resolving]
  - Hyperphagia [Recovering/Resolving]
  - Dyspepsia [Recovering/Resolving]
  - Mouth injury [Recovered/Resolved]
  - Pain [Recovering/Resolving]
  - Flatulence [Recovering/Resolving]
  - Incision site complication [Recovering/Resolving]
  - Drug ineffective [Recovered/Resolved]
  - Weight decreased [Recovering/Resolving]
  - Diabetes mellitus [Recovering/Resolving]
  - Asthenia [Recovering/Resolving]
  - Pancreaticoduodenectomy [Recovering/Resolving]
